FAERS Safety Report 7468470-2 (Version None)
Quarter: 2011Q2

REPORT INFORMATION
  Report Type: 
  Country: None (occurrence: None)
  Receive Date: 20110509
  Receipt Date: 20100115
  Transmission Date: 20111010
  Serious: Yes (Death, Other)
  Sender: FDA-Public Use
  Company Number: DE-GENENTECH-318232

PATIENT
  Age: 89 Year
  Sex: Female

DRUGS (1)
  1. LUCENTIS [Suspect]
     Indication: AGE-RELATED MACULAR DEGENERATION

REACTIONS (4)
  - ABASIA [None]
  - DEATH [None]
  - MALAISE [None]
  - TENDON RUPTURE [None]
